FAERS Safety Report 14140587 (Version 1)
Quarter: 2017Q4

REPORT INFORMATION
  Report Type: Spontaneous
  Country: US (occurrence: US)
  Receive Date: 20171027
  Receipt Date: 20171027
  Transmission Date: 20180321
  Serious: Yes (Other)
  Sender: FDA-Public Use
  Company Number: None

PATIENT
  Age: 66 Year
  Sex: Male
  Weight: 133.65 kg

DRUGS (1)
  1. TAMSULOSIN HCL [Suspect]
     Active Substance: TAMSULOSIN
     Indication: PROSTATITIS
     Route: 048
     Dates: start: 20140827, end: 20140827

REACTIONS (3)
  - Rash [None]
  - Dyspnoea [None]
  - Irritability [None]

NARRATIVE: CASE EVENT DATE: 20140824
